FAERS Safety Report 12579146 (Version 2)
Quarter: 2016Q3

REPORT INFORMATION
  Report Type: Spontaneous
  Country: JP (occurrence: JP)
  Receive Date: 20160721
  Receipt Date: 20160809
  Transmission Date: 20161109
  Serious: Yes (Hospitalization, Other)
  Sender: FDA-Public Use
  Company Number: JP-ASTELLAS-2016JP007249

PATIENT
  Age: 23 Year
  Sex: Female
  Weight: 57 kg

DRUGS (10)
  1. PROGRAF [Suspect]
     Active Substance: TACROLIMUS\TACROLIMUS ANHYDROUS
     Indication: IMMUNOSUPPRESSION
     Route: 048
     Dates: start: 200903
  2. IMURAN [Concomitant]
     Active Substance: AZATHIOPRINE
     Indication: IMMUNOSUPPRESSION
     Route: 048
     Dates: start: 2014, end: 20140902
  3. ALDOMET [Concomitant]
     Active Substance: METHYLDOPA
     Indication: GESTATIONAL HYPERTENSION
     Route: 048
     Dates: start: 20150701
  4. IMURAN [Concomitant]
     Active Substance: AZATHIOPRINE
     Indication: HEART TRANSPLANT
     Route: 048
     Dates: start: 20140903, end: 20150727
  5. PROGRAF [Suspect]
     Active Substance: TACROLIMUS\TACROLIMUS ANHYDROUS
     Indication: HEART TRANSPLANT
     Dosage: 5.7 MG, ONCE DAILY
     Route: 048
  6. PREDNISOLONE. [Concomitant]
     Active Substance: PREDNISOLONE
     Indication: IMMUNOSUPPRESSION
     Dosage: UNK UNK, UNKNOWN FREQ.
     Route: 065
  7. PROGRAF [Suspect]
     Active Substance: TACROLIMUS\TACROLIMUS ANHYDROUS
     Indication: HEART TRANSPLANT
  8. PROGRAF [Suspect]
     Active Substance: TACROLIMUS\TACROLIMUS ANHYDROUS
     Indication: IMMUNOSUPPRESSION
     Dosage: 0.4 MG, TWICE DAILY
     Route: 048
     Dates: start: 200903
  9. MYCOPHENOLATE MOFETIL. [Concomitant]
     Active Substance: MYCOPHENOLATE MOFETIL
     Indication: IMMUNOSUPPRESSION
     Route: 065
  10. MYCOPHENOLATE MOFETIL. [Concomitant]
     Active Substance: MYCOPHENOLATE MOFETIL
     Route: 065

REACTIONS (4)
  - Renal impairment [Recovered/Resolved]
  - Maternal exposure during pregnancy [Unknown]
  - Gestational hypertension [Recovered/Resolved]
  - Protein urine [Unknown]

NARRATIVE: CASE EVENT DATE: 2014
